FAERS Safety Report 8622668-6 (Version None)
Quarter: 2012Q3

REPORT INFORMATION
  Report Type: 
  Country: None (occurrence: None)
  Receive Date: 20120813
  Receipt Date: 20120731
  Transmission Date: 20120928
  Serious: Yes (Hospitalization)
  Sender: FDA-Public Use
  Company Number: ACO_31357_2012

PATIENT
  Sex: Female

DRUGS (14)
  1. OMEGA-3-ACID ETHYL ESTERS (LOVAZA) [Concomitant]
  2. COUMADIN [Concomitant]
  3. LASIX [Concomitant]
  4. VYTORIN [Concomitant]
  5. BONIVA [Concomitant]
  6. METFORMIN HCL [Concomitant]
  7. B-100 COMPLEX (NICOTINAMIDE, PYRIDOXINE HYDROCHLORIDE, RIBOFLAVIN, THI [Concomitant]
  8. VITAMIN E /00110501 (TOCOPHEROL) [Concomitant]
  9. AVONEX [Concomitant]
  10. CALCIUM CARBONATE [Concomitant]
  11. DITROPAN XL [Concomitant]
  12. AMPYRA [Suspect]
     Indication: PRODUCT USED FOR UNKNOWN INDICATION
     Dosage: 10 MG, BID, ORAL
     Route: 048
     Dates: start: 20100701
  13. ASPIRIN [Concomitant]
  14. POTASSIUM CHLORIDE [Concomitant]

REACTIONS (3)
  - OSTEOARTHRITIS [None]
  - AORTIC STENOSIS [None]
  - THROMBOSIS [None]
